FAERS Safety Report 4608929-6 (Version None)
Quarter: 2005Q1

REPORT INFORMATION
  Report Type: 
  Country: None (occurrence: None)
  Receive Date: 20050311
  Receipt Date: 20050308
  Transmission Date: 20050727
  Serious: Yes (Hospitalization)
  Sender: FDA-Public Use
  Company Number: THQ2005A00260

PATIENT
  Age: 61 Year
  Sex: Male

DRUGS (2)
  1. LUPRON [Suspect]
     Indication: METASTASES TO BONE
     Dosage: 22.5 MG (22.5 MG, 1 IN 3 M)
     Route: 030
     Dates: start: 20050203
  2. LUPRON [Suspect]
     Indication: PROSTATE CANCER METASTATIC
     Dosage: 22.5 MG (22.5 MG, 1 IN 3 M)
     Route: 030
     Dates: start: 20050203

REACTIONS (3)
  - HEPATIC ENZYME INCREASED [None]
  - RENAL FAILURE [None]
  - VISION BLURRED [None]
